FAERS Safety Report 20055047 (Version 1)
Quarter: 2021Q4

REPORT INFORMATION
  Report Type: Spontaneous
  Country: US (occurrence: None)
  Receive Date: 20211110
  Receipt Date: 20211110
  Transmission Date: 20220303
  Serious: Yes (Hospitalization)
  Sender: FDA-Public Use
  Company Number: None

PATIENT
  Sex: Female

DRUGS (1)
  1. HUMIRA [Suspect]
     Active Substance: ADALIMUMAB
     Indication: Psoriatic arthropathy
     Dosage: OTHER FREQUENCY : Q14D;?
     Route: 058
     Dates: start: 20180202

REACTIONS (5)
  - Arthralgia [None]
  - Pain in extremity [None]
  - Back pain [None]
  - Pneumonia [None]
  - Psoriasis [None]
